FAERS Safety Report 8872968 (Version 1)
Quarter: 2012Q4

REPORT INFORMATION
  Report Type: 
  Country: HR (occurrence: HR)
  Receive Date: 20121029
  Receipt Date: 20121029
  Transmission Date: 20130627
  Serious: Yes (Other)
  Sender: FDA-Public Use
  Company Number: PHHY2012HR095181

PATIENT
  Age: 64 Year
  Sex: Female
  Weight: 84 kg

DRUGS (5)
  1. BISOPROLOL [Suspect]
     Dosage: 1 DF, QD
     Route: 048
     Dates: start: 20120705, end: 20120720
  2. MODURETIC [Concomitant]
     Indication: ESSENTIAL HYPERTENSION
     Dosage: 0.5 DF, per day
     Route: 048
     Dates: start: 2006
  3. MONOPRIL [Concomitant]
     Indication: ESSENTIAL HYPERTENSION
     Dosage: 10 mg, daily
     Route: 048
     Dates: start: 2006
  4. TULIP (ATORVASTATIN CALCIUM) [Concomitant]
     Indication: LIPID METABOLISM DISORDER
     Dosage: 20 mg, per day
     Route: 048
     Dates: start: 2006
  5. PLIVIT D3 [Concomitant]
     Indication: OSTEOPOROSIS
     Route: 048
     Dates: start: 2006

REACTIONS (4)
  - Eyelid ptosis [Recovered/Resolved]
  - Muscle tightness [Recovered/Resolved]
  - Headache [Recovered/Resolved]
  - Fatigue [Recovered/Resolved]
